FAERS Safety Report 5226003-5 (Version None)
Quarter: 2007Q1

REPORT INFORMATION
  Report Type: 
  Country: None (occurrence: None)
  Receive Date: 20070201
  Receipt Date: 20070126
  Transmission Date: 20070707
  Serious: Yes (Death)
  Sender: FDA-Public Use
  Company Number: HK-BRISTOL-MYERS SQUIBB COMPANY-13658380

PATIENT
  Age: 69 Year
  Sex: Female

DRUGS (3)
  1. DASATINIB [Suspect]
     Indication: BLAST CRISIS IN MYELOGENOUS LEUKAEMIA
     Route: 048
     Dates: start: 20070105, end: 20070115
  2. TRIACT [Concomitant]
     Dates: start: 20061223, end: 20070113
  3. IMOVANE [Concomitant]
     Dates: start: 20061229, end: 20070113

REACTIONS (2)
  - NEUTROPENIA [None]
  - PNEUMONIA [None]
